FAERS Safety Report 9605201 (Version 1)
Quarter: 2013Q4

REPORT INFORMATION
  Report Type: Spontaneous
  Country: GB (occurrence: GB)
  Receive Date: 20131008
  Receipt Date: 20131008
  Transmission Date: 20140711
  Serious: Yes (Other)
  Sender: FDA-Public Use
  Company Number: GB-TEVA-436527ISR

PATIENT
  Sex: Male

DRUGS (1)
  1. RISPERIDONE [Suspect]
     Indication: BIPOLAR I DISORDER

REACTIONS (4)
  - Insomnia [Unknown]
  - Decreased appetite [Unknown]
  - Burning sensation [Unknown]
  - Drug withdrawal syndrome [Unknown]
